FAERS Safety Report 4963912-6 (Version None)
Quarter: 2006Q1

REPORT INFORMATION
  Report Type: 
  Country: None (occurrence: None)
  Receive Date: 20060330
  Receipt Date: 20060320
  Transmission Date: 20060701
  Serious: Yes (Other)
  Sender: FDA-Public Use
  Company Number: T200600092

PATIENT
  Age: 67 Year
  Sex: Female

DRUGS (1)
  1. OPTIRAY 160 [Suspect]
     Indication: COMPUTERISED TOMOGRAM
     Dosage: 100 ML, INTRAVENOUS
     Route: 042
     Dates: start: 20060320, end: 20060320

REACTIONS (12)
  - BLOOD PRESSURE INCREASED [None]
  - CHEST PAIN [None]
  - DRUG TOXICITY [None]
  - DYSPNOEA [None]
  - FLUSHING [None]
  - HYPERSENSITIVITY [None]
  - HYPOAESTHESIA ORAL [None]
  - LARYNGEAL OEDEMA [None]
  - PARAESTHESIA ORAL [None]
  - PNEUMONIA [None]
  - TONGUE DISORDER [None]
  - TREMOR [None]
